FAERS Safety Report 7461422-8 (Version None)
Quarter: 2011Q2

REPORT INFORMATION
  Report Type: 
  Country: None (occurrence: None)
  Receive Date: 20110428
  Receipt Date: 20100907
  Transmission Date: 20111010
  Serious: Yes (Hospitalization)
  Sender: FDA-Public Use
  Company Number: 2010GW000677

PATIENT
  Age: 64 Year
  Sex: Male

DRUGS (2)
  1. ZYCLARA [Suspect]
     Indication: ACTINIC KERATOSIS
     Dosage: 3.75 PCT;BID;TOP
     Route: 061
     Dates: start: 20100705, end: 20100701
  2. ZYCLARA [Suspect]
     Indication: BASAL CELL CARCINOMA
     Dosage: 3.75 PCT;BID;TOP
     Route: 061
     Dates: start: 20100705, end: 20100701

REACTIONS (18)
  - CAROTID ARTERIOSCLEROSIS [None]
  - DIZZINESS [None]
  - SWELLING [None]
  - LYMPHADENOPATHY [None]
  - TRANSIENT ISCHAEMIC ATTACK [None]
  - FLUSHING [None]
  - FATIGUE [None]
  - HYPERLIPIDAEMIA [None]
  - HYPERTENSION [None]
  - PARAESTHESIA [None]
  - INFLUENZA LIKE ILLNESS [None]
  - RASH PUSTULAR [None]
  - ERYTHEMA [None]
  - ASTHENIA [None]
  - CAROTID ARTERY STENOSIS [None]
  - TEMPERATURE INTOLERANCE [None]
  - CEREBROVASCULAR ACCIDENT [None]
  - HYPOAESTHESIA [None]
